FAERS Safety Report 14683368 (Version 1)
Quarter: 2018Q1

REPORT INFORMATION
  Report Type: Spontaneous
  Country: US (occurrence: US)
  Receive Date: 20180327
  Receipt Date: 20180327
  Transmission Date: 20180509
  Serious: No
  Sender: FDA-Public Use
  Company Number: US-PFIZER INC-2018126155

PATIENT
  Age: 86 Year
  Sex: Female
  Weight: 54.43 kg

DRUGS (1)
  1. XELJANZ XR [Suspect]
     Active Substance: TOFACITINIB CITRATE

REACTIONS (5)
  - Condition aggravated [Unknown]
  - Contusion [Unknown]
  - Increased tendency to bruise [Unknown]
  - Nausea [Unknown]
  - Muscular weakness [Unknown]
